FAERS Safety Report 26127055 (Version 1)
Quarter: 2025Q4

REPORT INFORMATION
  Report Type: Spontaneous
  Country: US (occurrence: None)
  Receive Date: 20251205
  Receipt Date: 20251205
  Transmission Date: 20260118
  Serious: Yes (Hospitalization)
  Sender: FDA-CTU
  Company Number: None

PATIENT
  Age: 95 Year
  Sex: Female
  Weight: 68 kg

DRUGS (1)
  1. CEFTRIAXONE SODIUM [Suspect]
     Active Substance: CEFTRIAXONE SODIUM
     Indication: Urinary tract infection
     Dosage: 1000 MG ONE TIME DOSE INTRAVENOUS BOLUS?
     Route: 040
     Dates: start: 20251203, end: 20251203

REACTIONS (4)
  - Hyporesponsive to stimuli [None]
  - Bradycardia [None]
  - Erythema [None]
  - Heart rate decreased [None]

NARRATIVE: CASE EVENT DATE: 20251203
